FAERS Safety Report 23468738 (Version 2)
Quarter: 2024Q1

REPORT INFORMATION
  Report Type: Spontaneous
  Country: US (occurrence: US)
  Receive Date: 20240202
  Receipt Date: 20240212
  Transmission Date: 20240410
  Serious: Yes (Hospitalization, Other)
  Sender: FDA-Public Use
  Company Number: US-MLMSERVICE-20240118-4784764-1

PATIENT

DRUGS (2)
  1. SIROLIMUS [Interacting]
     Active Substance: SIROLIMUS
     Indication: Immunosuppressant drug therapy
     Dosage: 1 MILLIGRAM, OD (BY MOUTH)
     Route: 048
  2. LISINOPRIL [Interacting]
     Active Substance: LISINOPRIL
     Indication: Product used for unknown indication
     Dosage: 5 MILLIGRAM, OD (LONG-TERM)
     Route: 065

REACTIONS (2)
  - Drug interaction [Recovered/Resolved]
  - Angioedema [Recovered/Resolved]
